FAERS Safety Report 12673663 (Version 1)
Quarter: 2016Q3

REPORT INFORMATION
  Report Type: Spontaneous
  Country: FR (occurrence: FR)
  Receive Date: 20160822
  Receipt Date: 20160822
  Transmission Date: 20161109
  Serious: Yes (Hospitalization)
  Sender: FDA-Public Use
  Company Number: FR-SA-2016SA149382

PATIENT
  Age: 23 Year
  Sex: Male

DRUGS (8)
  1. PERFALGAN [Suspect]
     Active Substance: ACETAMINOPHEN
     Indication: ANAESTHESIA
     Route: 042
     Dates: start: 20160726
  2. RIFADINE [Suspect]
     Active Substance: RIFAMPIN
     Indication: ANTIBIOTIC PROPHYLAXIS
     Route: 042
     Dates: start: 20160726, end: 20160726
  3. SUFENTANIL [Suspect]
     Active Substance: SUFENTANIL
     Route: 042
     Dates: start: 20160726, end: 20160726
  4. DIPRIVAN [Suspect]
     Active Substance: PROPOFOL
     Indication: ANAESTHESIA
     Route: 042
     Dates: start: 20160726, end: 20160726
  5. ACUPAN [Suspect]
     Active Substance: NEFOPAM HYDROCHLORIDE
     Indication: ANAESTHESIA
     Route: 042
     Dates: start: 20160726
  6. VANCOMYCINE [Suspect]
     Active Substance: VANCOMYCIN
     Indication: ANTIBIOTIC PROPHYLAXIS
     Route: 042
     Dates: start: 20160726, end: 20160726
  7. CELOCURINE [Suspect]
     Active Substance: SUCCINYLCHOLINE CHLORIDE
     Indication: ANAESTHESIA
     Route: 042
     Dates: start: 20160726, end: 20160726
  8. KETAMINE [Suspect]
     Active Substance: KETAMINE
     Route: 042
     Dates: start: 20160726, end: 20160726

REACTIONS (3)
  - Urticaria [Recovered/Resolved]
  - Tachycardia [Recovered/Resolved]
  - Generalised erythema [Recovered/Resolved]

NARRATIVE: CASE EVENT DATE: 20160726
